FAERS Safety Report 5562506-1 (Version None)
Quarter: 2007Q4

REPORT INFORMATION
  Report Type: 
  Country: None (occurrence: None)
  Receive Date: 20071217
  Receipt Date: 20071211
  Transmission Date: 20080405
  Serious: Yes (Life-Threatening, Hospitalization, Disabling)
  Sender: FDA-Public Use
  Company Number: CN-JNJFOC-20070501994

PATIENT
  Sex: Female
  Weight: 63 kg

DRUGS (2)
  1. DOXORUBICIN HCL [Suspect]
     Indication: OVARIAN CANCER
     Dosage: 4 CYCLES RECEIVED BEFORE EVENT
     Route: 042
     Dates: start: 20070416, end: 20070416
  2. TRABECTEDIN [Suspect]
     Indication: OVARIAN CANCER
     Route: 065

REACTIONS (3)
  - BONE MARROW FAILURE [None]
  - LEUKOPENIA [None]
  - PULMONARY FIBROSIS [None]
